FAERS Safety Report 7688846-8 (Version None)
Quarter: 2011Q3

REPORT INFORMATION
  Report Type: 
  Country: None (occurrence: None)
  Receive Date: 20110817
  Receipt Date: 20110808
  Transmission Date: 20111222
  Serious: Yes (Other)
  Sender: FDA-Public Use
  Company Number: PHHY2011DE71475

PATIENT
  Sex: Male

DRUGS (2)
  1. SANDOSTATIN LAR [Suspect]
     Route: 030
     Dates: start: 20090901, end: 20110101
  2. EVEROLIMUS [Suspect]
     Dosage: 10 MG, DAILY
     Route: 048
     Dates: start: 20090901, end: 20110101

REACTIONS (11)
  - ASCITES [None]
  - PLEURAL EFFUSION [None]
  - OEDEMA PERIPHERAL [None]
  - FATIGUE [None]
  - DYSGEUSIA [None]
  - PANCREATITIS [None]
  - DIABETIC COMPLICATION [None]
  - ALANINE AMINOTRANSFERASE INCREASED [None]
  - TRANSAMINASES INCREASED [None]
  - HYPOALBUMINAEMIA [None]
  - HYPERLIPIDAEMIA [None]
